FAERS Safety Report 22602001 (Version 1)
Quarter: 2023Q2

REPORT INFORMATION
  Report Type: Spontaneous
  Country: US (occurrence: None)
  Receive Date: 20230614
  Receipt Date: 20230614
  Transmission Date: 20230722
  Serious: Yes (unspecified)
  Sender: FDA-Public Use
  Company Number: None

PATIENT
  Age: 38 Year
  Sex: Female

DRUGS (1)
  1. ADEMPAS [Suspect]
     Active Substance: RIOCIGUAT
     Indication: Pulmonary arterial hypertension
     Dosage: OTHER QUANTITY : 2.5MG;?FREQUENCY : 3 TIMES A DAY;?
     Route: 048
     Dates: start: 20220107

REACTIONS (4)
  - Pain [None]
  - Nasal congestion [None]
  - Cough [None]
  - Nonspecific reaction [None]

NARRATIVE: CASE EVENT DATE: 20230613
